FAERS Safety Report 20559167 (Version 1)
Quarter: 2022Q1

REPORT INFORMATION
  Report Type: Spontaneous
  Country: CN (occurrence: CN)
  Receive Date: 20220307
  Receipt Date: 20220307
  Transmission Date: 20220423
  Serious: Yes (Other)
  Sender: FDA-Public Use
  Company Number: CN-ELI_LILLY_AND_COMPANY-CN202202010190

PATIENT
  Age: 78 Year
  Sex: Male

DRUGS (2)
  1. HUMULIN R [Suspect]
     Active Substance: INSULIN HUMAN
     Indication: Diabetes mellitus
     Dosage: 22 U, EACH MORNING
     Route: 058
  2. HUMULIN R [Suspect]
     Active Substance: INSULIN HUMAN
     Dosage: 20 U, DAILY AT NIGHT
     Route: 058

REACTIONS (4)
  - Neoplasm malignant [Unknown]
  - Visual impairment [Unknown]
  - Cerebral disorder [Unknown]
  - Ear disorder [Unknown]
